FAERS Safety Report 16687554 (Version 1)
Quarter: 2019Q3

REPORT INFORMATION
  Report Type: Spontaneous
  Country: US (occurrence: US)
  Receive Date: 20190809
  Receipt Date: 20190809
  Transmission Date: 20191004
  Serious: Yes (Death, Life-Threatening, Hospitalization, Other)
  Sender: FDA-Public Use
  Company Number: US-DRREDDYS-USA/USA/19/0112840

PATIENT
  Age: 38 Year
  Sex: Female

DRUGS (16)
  1. FLUOROURACIL. [Suspect]
     Active Substance: FLUOROURACIL
     Indication: NEUROENDOCRINE TUMOUR
  2. METHADONE [Suspect]
     Active Substance: METHADONE HYDROCHLORIDE
     Indication: CANCER PAIN
     Dosage: 10 MG Q8H
     Route: 048
  3. METHADONE [Suspect]
     Active Substance: METHADONE HYDROCHLORIDE
     Dosage: 30 MG PO Q8H
     Route: 048
  4. OXYCODONE [Suspect]
     Active Substance: OXYCODONE
     Indication: CANCER PAIN
     Dosage: OXYCODONE 40 MG Q4H
  5. OXYCODONE [Suspect]
     Active Substance: OXYCODONE
     Dosage: INCREASED TO 60 MG Q4H PRN
  6. METHADONE [Suspect]
     Active Substance: METHADONE HYDROCHLORIDE
     Route: 048
  7. DOXORUBICIN HYDROCHLORIDE LIPOSOME INJECTION 20 MG/10 ML (2 MG/ML) AND [Suspect]
     Active Substance: DOXORUBICIN HYDROCHLORIDE
     Indication: NEUROENDOCRINE TUMOUR
  8. DEXAMETHASONE SODIUM PHOSPHATE INJECTION, 4 MG/ML [Suspect]
     Active Substance: DEXAMETHASONE SODIUM PHOSPHATE
     Indication: CANCER PAIN
     Route: 042
  9. ETOPOSIDE. [Suspect]
     Active Substance: ETOPOSIDE
     Indication: NEUROENDOCRINE TUMOUR
  10. HYDROMORPHONE [Suspect]
     Active Substance: HYDROMORPHONE
     Indication: CANCER PAIN
     Dosage: HYDROMORPHONE 6 MG Q2H PRN
  11. KETAMINE [Suspect]
     Active Substance: KETAMINE
     Indication: CANCER PAIN
     Dosage: KETAMINE TITRATED TO O 0.3 MG/KG/H, 0.4 MG/KG/H AND 0.5 MG/KG/H
  12. CARBOPLATIN. [Suspect]
     Active Substance: CARBOPLATIN
     Indication: NEUROENDOCRINE TUMOUR
  13. STREPTOZOCIN [Suspect]
     Active Substance: STREPTOZOCIN
     Indication: NEUROENDOCRINE TUMOUR
  14. OXYCODONE [Suspect]
     Active Substance: OXYCODONE
     Dosage: OXYCODONE CR 120 MG Q12H
  15. LORAZEPAM INJECTION USP, 2 MG/ML AND 4 MG/ML [Suspect]
     Active Substance: LORAZEPAM
     Indication: ANXIETY
  16. HYDROMORPHONE [Suspect]
     Active Substance: HYDROMORPHONE
     Indication: MENTAL DISORDER
     Dosage: NTRAVENOUS HYDROMORPHONE BASAL INFUSION RATE OF 1.5 MG/H AND 2 MG DEMAND DOSE EVERY 15 MINUTES AS NE
     Route: 042

REACTIONS (5)
  - Hyperaesthesia [Fatal]
  - Delirium [Unknown]
  - Mental status changes [Unknown]
  - Drug ineffective [Unknown]
  - Anxiety [Fatal]
